FAERS Safety Report 4755493-7 (Version None)
Quarter: 2005Q3

REPORT INFORMATION
  Report Type: 
  Country: None (occurrence: None)
  Receive Date: 20050830
  Receipt Date: 20040622
  Transmission Date: 20060218
  Serious: Yes (Other)
  Sender: FDA-Public Use
  Company Number: US-BRISTOL-MYERS SQUIBB COMPANY-12622155

PATIENT
  Age: 59 Year
  Sex: Female

DRUGS (6)
  1. ABILIFY [Suspect]
     Indication: DEPRESSED MOOD
     Dosage: DECREASED TO 10 MG/DAY ON 03-MAY-2005
     Route: 048
  2. KLONOPIN [Concomitant]
  3. CALCIUM GLUCONATE [Concomitant]
  4. ST JOHN WORT [Concomitant]
  5. ST. JOSEPH ASPIRIN [Concomitant]
  6. OCEAN MIST [Concomitant]

REACTIONS (11)
  - BLOOD POTASSIUM DECREASED [None]
  - DIABETES MELLITUS [None]
  - DIZZINESS [None]
  - DRY EYE [None]
  - HEAT STROKE [None]
  - MYOCARDIAL INFARCTION [None]
  - NAUSEA [None]
  - POLLAKIURIA [None]
  - RASH [None]
  - VOMITING [None]
  - WEIGHT DECREASED [None]
